FAERS Safety Report 6999494-7 (Version None)
Quarter: 2010Q3

REPORT INFORMATION
  Report Type: 
  Country: None (occurrence: None)
  Receive Date: 20100920
  Receipt Date: 20070629
  Transmission Date: 20110219
  Serious: Yes (Other)
  Sender: FDA-Public Use
  Company Number: US-ASTRAZENECA-2007UW09589

PATIENT
  Age: 20760 Day
  Sex: Male
  Weight: 60.6 kg

DRUGS (11)
  1. SEROQUEL [Suspect]
     Indication: DEPRESSION
     Dosage: STRENGTH- 50MG, 300MG  DOSE-50 MG-300MG
     Route: 048
     Dates: start: 20050418
  2. SEROQUEL [Suspect]
     Indication: INSOMNIA
     Dosage: STRENGTH- 50MG, 300MG  DOSE-50 MG-300MG
     Route: 048
     Dates: start: 20050418
  3. SEROQUEL [Suspect]
     Indication: SLEEP DISORDER
     Dosage: STRENGTH- 50MG, 300MG  DOSE-50 MG-300MG
     Route: 048
     Dates: start: 20050418
  4. OLANZAPINE [Concomitant]
  5. LOVENOX [Concomitant]
     Indication: DEEP VEIN THROMBOSIS
     Dates: start: 20050418
  6. SERTRALINE HYDROCHLORIDE [Concomitant]
     Indication: DEPRESSION
     Route: 048
     Dates: start: 20050418
  7. SERTRALINE HYDROCHLORIDE [Concomitant]
     Indication: ANXIETY
     Route: 048
     Dates: start: 20050418
  8. SIMVASTATIN [Concomitant]
     Indication: BLOOD CHOLESTEROL
     Route: 048
     Dates: start: 20050418
  9. SULINDAC [Concomitant]
     Route: 048
     Dates: start: 20050418
  10. METOPROLOL TARTRATE [Concomitant]
     Indication: BLOOD PRESSURE
     Route: 048
     Dates: start: 20050418
  11. METOPROLOL TARTRATE [Concomitant]
     Indication: CARDIAC DISORDER
     Route: 048
     Dates: start: 20050418

REACTIONS (3)
  - DIABETES MELLITUS [None]
  - DIABETIC COMA [None]
  - DIABETIC KETOACIDOSIS [None]
